FAERS Safety Report 7465708-2 (Version None)
Quarter: 2011Q2

REPORT INFORMATION
  Report Type: 
  Country: None (occurrence: None)
  Receive Date: 20110509
  Receipt Date: 20110421
  Transmission Date: 20111010
  Serious: Yes (Other)
  Sender: FDA-Public Use
  Company Number: B0715278A

PATIENT
  Sex: Female

DRUGS (8)
  1. RENAGEL [Concomitant]
     Indication: DIALYSIS
     Dosage: 3000MG PER DAY
     Route: 048
     Dates: start: 19980101
  2. GASMOTIN [Concomitant]
     Indication: DIALYSIS
     Dosage: 15MG PER DAY
     Route: 048
     Dates: start: 19980101
  3. VALTREX [Suspect]
     Indication: HERPES ZOSTER
     Dosage: 250MG PER DAY
     Route: 048
     Dates: start: 20110412, end: 20110413
  4. CINAL [Concomitant]
     Indication: DIALYSIS
     Dosage: 600MG PER DAY
     Route: 048
     Dates: start: 19980101
  5. YOUCOBAL [Concomitant]
     Indication: DIALYSIS
     Dosage: 1500MCG PER DAY
     Route: 048
     Dates: start: 19980101
  6. TAKEPRON [Concomitant]
     Indication: DIALYSIS
     Dosage: 15MG PER DAY
     Route: 048
     Dates: start: 19980101
  7. PROMAC [Concomitant]
     Indication: DIALYSIS
     Dosage: 150MG PER DAY
     Route: 048
     Dates: start: 19980101
  8. AMLODIPINE BESILATE [Concomitant]
     Indication: DIALYSIS
     Dosage: 5MG PER DAY
     Route: 048
     Dates: start: 19980101

REACTIONS (5)
  - DYSARTHRIA [None]
  - MUSCULAR WEAKNESS [None]
  - ASTHENIA [None]
  - DEPRESSED LEVEL OF CONSCIOUSNESS [None]
  - HYPOAESTHESIA [None]
